FAERS Safety Report 13593399 (Version 1)
Quarter: 2017Q2

REPORT INFORMATION
  Report Type: Spontaneous
  Country: PT (occurrence: PT)
  Receive Date: 20170530
  Receipt Date: 20170530
  Transmission Date: 20170830
  Serious: Yes (Death, Other)
  Sender: FDA-Public Use
  Company Number: PT-VIRTUS PHARMACEUTICALS, LLC-2017VTS00629

PATIENT
  Age: 37 Year
  Sex: Male

DRUGS (6)
  1. TEMAZEPAM. [Suspect]
     Active Substance: TEMAZEPAM
     Route: 048
  2. ALCOHOL. [Suspect]
     Active Substance: ALCOHOL
     Route: 048
  3. METOCLOPRAMIDE. [Concomitant]
     Active Substance: METOCLOPRAMIDE
     Route: 048
  4. PENTOBARBITAL. [Suspect]
     Active Substance: PENTOBARBITAL
     Route: 048
  5. DIAZEPAM. [Suspect]
     Active Substance: DIAZEPAM
     Route: 065
  6. OXAZEPAM. [Suspect]
     Active Substance: OXAZEPAM
     Route: 048

REACTIONS (5)
  - Poisoning [Not Recovered/Not Resolved]
  - Completed suicide [Fatal]
  - Cardio-respiratory arrest [Fatal]
  - Respiratory depression [Fatal]
  - Drug interaction [Not Recovered/Not Resolved]
